FAERS Safety Report 5442993-X (Version None)
Quarter: 2007Q3

REPORT INFORMATION
  Report Type: 
  Country: None (occurrence: None)
  Receive Date: 20070905
  Receipt Date: 20070828
  Transmission Date: 20080115
  Serious: Yes (Other)
  Sender: FDA-Public Use
  Company Number: PHEH2007US11521

PATIENT
  Sex: Male

DRUGS (7)
  1. ZOMETA [Suspect]
     Indication: OSTEITIS DEFORMANS
     Dosage: 4 MG, ONCE/SINGLE
     Route: 042
     Dates: start: 20070525
  2. CELEXA [Concomitant]
  3. COZAAR [Concomitant]
     Dosage: 100 UNK, UNK
  4. LOPRESSOR [Concomitant]
     Dosage: 25 UNK, UNK
  5. LIPITOR [Concomitant]
     Dosage: 10 UNK, UNK
  6. NEURONTIN [Concomitant]
     Dosage: 600 UNK, TID
  7. DARVOCET [Concomitant]
     Indication: BACK PAIN
     Dosage: 1/2 TABLET A DAY PRN

REACTIONS (9)
  - ASTHENIA [None]
  - CARDIAC FAILURE CONGESTIVE [None]
  - CHILLS [None]
  - DYSPNOEA [None]
  - FALL [None]
  - HYPOCALCAEMIA [None]
  - INFLUENZA LIKE ILLNESS [None]
  - MYALGIA [None]
  - PYREXIA [None]
